FAERS Safety Report 10404139 (Version 1)
Quarter: 2014Q1

REPORT INFORMATION
  Report Type: Spontaneous
  Country: US (occurrence: None)
  Receive Date: 20131219
  Receipt Date: 20131219
  Transmission Date: 20141002
  Serious: Yes (Hospitalization)
  Sender: FDA-Public Use
  Company Number: 163-20785-13030377

PATIENT
  Age: 69 Year
  Sex: Male

DRUGS (1)
  1. THALOMID (THALIDOMIDE) (100 MILLIGRAM, CAPSULES) [Suspect]
     Indication: PLASMA CELL MYELOMA
     Route: 048
     Dates: start: 201204

REACTIONS (1)
  - Thrombosis [None]
